FAERS Safety Report 7058701-5 (Version None)
Quarter: 2010Q4

REPORT INFORMATION
  Report Type: 
  Country: None (occurrence: None)
  Receive Date: 20101022
  Receipt Date: 20101019
  Transmission Date: 20110411
  Serious: Yes (Life-Threatening, Hospitalization)
  Sender: FDA-Public Use
  Company Number: NL-B.I. PHARMACEUTICALS,INC./RIDGEFIELD-2010-NL-00453NL

PATIENT
  Sex: Female

DRUGS (4)
  1. MICARDIS [Suspect]
     Indication: HYPERTENSION
     Dosage: 40 MG
     Dates: start: 20080818, end: 20081020
  2. MICARDIS [Suspect]
     Dosage: 80 MG
     Dates: start: 20081021, end: 20081222
  3. MICARDIS [Suspect]
     Dosage: 40 MG
     Dates: start: 20081223, end: 20100708
  4. ASCAL CARDIO-NEURO 100MG [Concomitant]

REACTIONS (2)
  - MYALGIA [None]
  - RENAL FAILURE [None]
